FAERS Safety Report 17554230 (Version 1)
Quarter: 2020Q1

REPORT INFORMATION
  Report Type: Report from Study
  Country: None (occurrence: IL)
  Receive Date: 20200318
  Receipt Date: 20200318
  Transmission Date: 20200409
  Serious: Yes (Hospitalization)
  Sender: FDA-Public Use
  Company Number: IL-ABBVIE-20K-082-3310573-00

PATIENT
  Age: 27 Year
  Sex: Female

DRUGS (2)
  1. HUMIRA [Suspect]
     Active Substance: ADALIMUMAB
     Indication: COLITIS ULCERATIVE
     Route: 058
     Dates: start: 2020
  2. HUMIRA [Suspect]
     Active Substance: ADALIMUMAB
     Indication: COLITIS ULCERATIVE
     Route: 058
     Dates: start: 20200207, end: 2020

REACTIONS (5)
  - Colitis ulcerative [Unknown]
  - Maternal exposure during pregnancy [Unknown]
  - Nasopharyngitis [Recovered/Resolved]
  - Renal colic [Unknown]
  - Calculus urinary [Unknown]

NARRATIVE: CASE EVENT DATE: 2020
